FAERS Safety Report 11932447 (Version 1)
Quarter: 2016Q1

REPORT INFORMATION
  Report Type: Report from Study
  Country: US (occurrence: US)
  Receive Date: 20160120
  Receipt Date: 20160120
  Transmission Date: 20160526
  Serious: Yes (Hospitalization, Other)
  Sender: FDA-Public Use
  Company Number: US-BIOGEN-2016BI00175522

PATIENT
  Sex: Female

DRUGS (1)
  1. TECFIDERA [Suspect]
     Active Substance: DIMETHYL FUMARATE
     Indication: MULTIPLE SCLEROSIS
     Dosage: MAINTENANCE DOSE
     Route: 048
     Dates: end: 20141201

REACTIONS (10)
  - Sepsis [Unknown]
  - Body temperature increased [Unknown]
  - Amnesia [Unknown]
  - Renal impairment [Unknown]
  - Neurogenic bladder [Unknown]
  - Multiple sclerosis relapse [Unknown]
  - Cardiac pacemaker insertion [Unknown]
  - Urinary tract infection [Unknown]
  - Gait disturbance [Unknown]
  - Urinary cystectomy [Unknown]
